FAERS Safety Report 4886529-0 (Version None)
Quarter: 2006Q1

REPORT INFORMATION
  Report Type: 
  Country: None (occurrence: None)
  Receive Date: 20060120
  Receipt Date: 20050607
  Transmission Date: 20060701
  Serious: Yes (Hospitalization, Other)
  Sender: FDA-Public Use
  Company Number: 200514912US

PATIENT
  Sex: Male
  Weight: 84 kg

DRUGS (9)
  1. LANTUS [Suspect]
     Indication: DIABETES MELLITUS INSULIN-DEPENDENT
     Dates: start: 20050607
  2. LANTUS [Suspect]
  3. OPTICLIK (INSULIN INJECTION PEN) [Suspect]
     Indication: DIABETES MELLITUS INSULIN-DEPENDENT
     Dosage: DOSE: UNK
     Dates: start: 20050607
  4. NOVOLOG [Concomitant]
     Dosage: DOSE: UNKNOWN
  5. AVANDIA [Concomitant]
     Indication: DIABETES MELLITUS
     Dates: start: 20030801
  6. LIPITOR [Concomitant]
     Indication: DIABETES MELLITUS
     Dates: start: 20030801
  7. LIPITOR [Concomitant]
     Indication: BLOOD CHOLESTEROL
     Dates: start: 20030801
  8. LISINOPRIL [Concomitant]
     Indication: DIABETES MELLITUS
     Dates: start: 20030801
  9. LISINOPRIL [Concomitant]
     Indication: BLOOD PRESSURE
     Dates: start: 20030801

REACTIONS (8)
  - ACCIDENTAL OVERDOSE [None]
  - ATRIAL FIBRILLATION [None]
  - BLOOD GLUCOSE DECREASED [None]
  - CONVULSION [None]
  - DEVICE MALFUNCTION [None]
  - DIZZINESS [None]
  - HYPOGLYCAEMIA [None]
  - LOSS OF CONSCIOUSNESS [None]
